FAERS Safety Report 7505641-0 (Version None)
Quarter: 2011Q2

REPORT INFORMATION
  Report Type: 
  Country: None (occurrence: None)
  Receive Date: 20110420
  Receipt Date: 20110202
  Transmission Date: 20111010
  Serious: Yes (Hospitalization)
  Sender: FDA-Public Use
  Company Number: 2011SP004701

PATIENT
  Age: 38 Year
  Sex: Female

DRUGS (4)
  1. DULERA TABLET [Suspect]
     Indication: ASTHMA
     Dosage: INH
     Route: 055
     Dates: start: 20110124, end: 20110124
  2. DULERA TABLET [Suspect]
     Indication: CHRONIC OBSTRUCTIVE PULMONARY DISEASE
     Dosage: INH
     Route: 055
     Dates: start: 20110124, end: 20110124
  3. DULERA TABLET [Suspect]
     Indication: EMPHYSEMA
     Dosage: INH
     Route: 055
     Dates: start: 20110124, end: 20110124
  4. TAGAMET /00397402/ [Concomitant]

REACTIONS (1)
  - ASTHMA [None]
